FAERS Safety Report 24399149 (Version 1)
Quarter: 2024Q4

REPORT INFORMATION
  Report Type: Spontaneous
  Country: FR (occurrence: FR)
  Receive Date: 20241004
  Receipt Date: 20241004
  Transmission Date: 20250115
  Serious: Yes (Hospitalization)
  Sender: Harrow Health
  Company Number: None

PATIENT
  Age: 53 Year
  Sex: Male
  Weight: 100 kg

DRUGS (4)
  1. IOPIDINE [Suspect]
     Active Substance: APRACLONIDINE HYDROCHLORIDE
     Indication: Glaucoma surgery
     Dosage: 1 DOSAGE FORM (1 DROP 1 HOUR LATER)
     Route: 047
     Dates: start: 20240627, end: 20240627
  2. IOPIDINE [Suspect]
     Active Substance: APRACLONIDINE HYDROCHLORIDE
     Indication: Glaucoma surgery
     Dosage: 1 DOSAGE FORM (1 DROP 1 HOUR LATER)
     Route: 047
     Dates: start: 20240627, end: 20240627
  3. PILOCARPINE HYDROCHLORIDE [Suspect]
     Active Substance: PILOCARPINE HYDROCHLORIDE
     Indication: Glaucoma surgery
     Dosage: 4 DOSAGE FORM, QH (EVERY QUARTER OF AN HOUR FOR 1 HOUR)
     Route: 047
     Dates: start: 20240627, end: 20240627
  4. INDOMETHACIN [Suspect]
     Active Substance: INDOMETHACIN
     Indication: Glaucoma surgery
     Dosage: 3 DOSAGE FORM, QD (1 DROP 3X/DAY).
     Route: 047
     Dates: start: 20240627, end: 20240718

REACTIONS (1)
  - Retinal detachment [Recovered/Resolved]

NARRATIVE: CASE EVENT DATE: 20240629
